FAERS Safety Report 8814994 (Version 2)
Quarter: 2015Q2

REPORT INFORMATION
  Report Type: Report from Study
  Country: US (occurrence: US)
  Receive Date: 20120928
  Receipt Date: 20150424
  Transmission Date: 20150821
  Serious: Yes (Death, Hospitalization)
  Sender: FDA-Public Use
  Company Number: US-ROCHE-1103794

PATIENT
  Sex: Female

DRUGS (5)
  1. XELODA [Suspect]
     Active Substance: CAPECITABINE
     Indication: PRODUCT USED FOR UNKNOWN INDICATION
     Route: 065
     Dates: start: 200701
  2. HERCEPTIN [Suspect]
     Active Substance: TRASTUZUMAB
     Indication: BREAST CANCER FEMALE
     Dosage: SUBSEQUENT DOSES RECEIVED ON: 31/MAY/2007, 21/JUN/2007 AND 16/JUL/2007
     Route: 042
     Dates: start: 20070501
  3. AVASTIN [Suspect]
     Active Substance: BEVACIZUMAB
     Indication: PRODUCT USED FOR UNKNOWN INDICATION
     Route: 065
  4. ABRAXANE [Suspect]
     Active Substance: PACLITAXEL
     Indication: PRODUCT USED FOR UNKNOWN INDICATION
     Route: 042
  5. ZOMETA [Concomitant]
     Active Substance: ZOLEDRONIC ACID
     Dosage: IN 100 ML NS
     Route: 042

REACTIONS (11)
  - Rash [Unknown]
  - Bone pain [Unknown]
  - Dyspnoea [Unknown]
  - Thrombocytopenia [Unknown]
  - Drug ineffective [Unknown]
  - Pneumothorax [Unknown]
  - Neuropathy peripheral [Unknown]
  - Palmar-plantar erythrodysaesthesia syndrome [Unknown]
  - Disease progression [Fatal]
  - Joint swelling [Unknown]
  - Ejection fraction decreased [Unknown]
